FAERS Safety Report 4765617-3 (Version None)
Quarter: 2005Q3

REPORT INFORMATION
  Report Type: 
  Country: None (occurrence: None)
  Receive Date: 20050906
  Receipt Date: 20050819
  Transmission Date: 20060218
  Serious: No
  Sender: FDA-Public Use
  Company Number: GBS050818148

PATIENT
  Age: 61 Year
  Sex: Female
  Weight: 80 kg

DRUGS (13)
  1. XIGRIS [Suspect]
     Dosage: 24 UG/KG/HR
     Dates: start: 20050807, end: 20050811
  2. CEFUROXIME [Concomitant]
  3. ERYTHROMYCIN [Concomitant]
  4. RANITIDINE [Concomitant]
  5. METRONIDAZOLE [Concomitant]
  6. HYDROCORTISONE [Concomitant]
  7. METOCLOPRAMIDE [Concomitant]
  8. FUROSEMIDE [Concomitant]
  9. INSULIN [Concomitant]
  10. AMIODARONE HCL [Concomitant]
  11. ADENOSINE [Concomitant]
  12. ADRENALINE [Concomitant]
  13. SODIUM BICARBONATE [Concomitant]

REACTIONS (2)
  - HYPERTENSION [None]
  - INTERNATIONAL NORMALISED RATIO INCREASED [None]
